FAERS Safety Report 9553266 (Version 1)
Quarter: 2013Q1

REPORT INFORMATION
  Report Type: Spontaneous
  Country: US (occurrence: None)
  Receive Date: 20130314
  Receipt Date: 20130314
  Transmission Date: 20140127
  Serious: No
  Sender: FDA-Public Use
  Company Number: 1210USA002206

PATIENT
  Age: 66 Year
  Sex: Male

DRUGS (3)
  1. RIBAVIRIN [Suspect]
     Indication: HEPATITIS C
     Route: 048
     Dates: start: 20120928
  2. VICTRELIS [Suspect]
     Indication: HEPATITIS C
     Route: 048
     Dates: start: 20121025
  3. PEGASYS (PEGINTERFERON ALFA-2A) [Concomitant]

REACTIONS (7)
  - Sinus disorder [None]
  - Pain [None]
  - Headache [None]
  - White blood cell count decreased [None]
  - Somnolence [None]
  - Malaise [None]
  - Fatigue [None]
